FAERS Safety Report 5087733-1 (Version None)
Quarter: 2006Q3

REPORT INFORMATION
  Report Type: 
  Country: None (occurrence: None)
  Receive Date: 20060821
  Receipt Date: 20060817
  Transmission Date: 20061208
  Serious: Yes (Hospitalization)
  Sender: FDA-Public Use
  Company Number: STA-AE-06-056

PATIENT
  Age: 35 Year
  Sex: Male

DRUGS (1)
  1. DIAZEPAM [Suspect]
     Indication: ALCOHOL WITHDRAWAL SYNDROME
     Dosage: 2,450MG IV
     Route: 042

REACTIONS (3)
  - BLOOD OSMOLARITY INCREASED [None]
  - METABOLIC FUNCTION TEST ABNORMAL [None]
  - OSMOLAR GAP ABNORMAL [None]
